FAERS Safety Report 16674544 (Version 1)
Quarter: 2019Q3

REPORT INFORMATION
  Report Type: Spontaneous
  Country: US (occurrence: US)
  Receive Date: 20190806
  Receipt Date: 20190806
  Transmission Date: 20191004
  Serious: No
  Sender: FDA-Public Use
  Company Number: US-BAUSCH-BL-2019-020830

PATIENT
  Age: 44 Year
  Sex: Female
  Weight: 81.72 kg

DRUGS (1)
  1. ALAWAY [Suspect]
     Active Substance: KETOTIFEN FUMARATE
     Indication: EYE ALLERGY
     Dosage: AS NEEDED
     Route: 047
     Dates: start: 201907, end: 201907

REACTIONS (2)
  - Eye irritation [Recovered/Resolved]
  - Eye pain [Recovered/Resolved]

NARRATIVE: CASE EVENT DATE: 201907
